FAERS Safety Report 8291582-0 (Version None)
Quarter: 2012Q2

REPORT INFORMATION
  Report Type: 
  Country: None (occurrence: None)
  Receive Date: 20120413
  Receipt Date: 20120409
  Transmission Date: 20120825
  Serious: Yes (Death, Other)
  Sender: FDA-Public Use
  Company Number: 2012049860

PATIENT
  Age: 65 Year
  Sex: Male

DRUGS (6)
  1. FRAGMIN [Suspect]
     Dosage: 12500 IU/ 0.5ML
  2. DEXAMETHASONE [Concomitant]
  3. DILANTIN [Concomitant]
  4. HYDROMORPH CONTIN (HYDROMORPHONE HYDROCHLORIDE) [Concomitant]
  5. OMEPRAZOLE [Concomitant]
  6. DILAUDID [Concomitant]

REACTIONS (2)
  - MULTI-ORGAN FAILURE [None]
  - SYRINGE ISSUE [None]
